FAERS Safety Report 25317025 (Version 1)
Quarter: 2025Q2

REPORT INFORMATION
  Report Type: Spontaneous
  Country: IT (occurrence: IT)
  Receive Date: 20250515
  Receipt Date: 20250515
  Transmission Date: 20250716
  Serious: Yes (Disabling, Other)
  Sender: SANOFI AVENTIS
  Company Number: IT-SA-2025SA137051

PATIENT
  Age: 67 Year
  Sex: Female
  Weight: 78 kg

DRUGS (1)
  1. AVALGLUCOSIDASE ALFA [Suspect]
     Active Substance: AVALGLUCOSIDASE ALFA
     Indication: Glycogen storage disease type II
     Dosage: 1.5 MG, Q15D
     Dates: start: 20241218

REACTIONS (7)
  - Phlebitis [Recovering/Resolving]
  - Asthenia [Recovering/Resolving]
  - Pyrexia [Recovered/Resolved]
  - Oedema [Unknown]
  - Arthralgia [Unknown]
  - Pain [Unknown]
  - Pain in extremity [Unknown]

NARRATIVE: CASE EVENT DATE: 20241218
